FAERS Safety Report 6215642-0 (Version None)
Quarter: 2009Q2

REPORT INFORMATION
  Report Type: 
  Country: None (occurrence: None)
  Receive Date: 20090603
  Receipt Date: 20090603
  Transmission Date: 20091009
  Serious: Yes (Hospitalization)
  Sender: FDA-Public Use
  Company Number: None

PATIENT
  Sex: Female
  Weight: 81.6475 kg

DRUGS (2)
  1. ABILIFY [Suspect]
     Indication: MANIA
     Dates: start: 20080701, end: 20080801
  2. DEPAKOTE [Concomitant]

REACTIONS (3)
  - ANGER [None]
  - MALAISE [None]
  - MENTAL DISORDER [None]
